FAERS Safety Report 13824593 (Version 2)
Quarter: 2017Q3

REPORT INFORMATION
  Report Type: Spontaneous
  Country: JP (occurrence: JP)
  Receive Date: 20170802
  Receipt Date: 20170911
  Transmission Date: 20171127
  Serious: Yes (Other)
  Sender: FDA-Public Use
  Company Number: JP-ABBVIE-17P-087-2058909-00

PATIENT
  Age: 63 Year
  Sex: Male

DRUGS (3)
  1. TRICOR [Suspect]
     Active Substance: FENOFIBRATE
     Indication: HYPERLIPIDAEMIA
     Dosage: 160 MG, QD
     Route: 048
     Dates: start: 20170428, end: 20170621
  2. IRBETAN [Concomitant]
     Active Substance: IRBESARTAN
     Indication: HYPERTENSION
     Dosage: 50 MG, QD
     Route: 048
     Dates: start: 20131025
  3. FEBURIC [Concomitant]
     Active Substance: FEBUXOSTAT
     Indication: GOUT
     Dosage: 10 MG, QD
     Route: 048
     Dates: start: 201607

REACTIONS (2)
  - Hepatic function abnormal [Recovered/Resolved]
  - Chromaturia [Unknown]

NARRATIVE: CASE EVENT DATE: 20170620
